FAERS Safety Report 13763066 (Version 1)
Quarter: 2017Q3

REPORT INFORMATION
  Report Type: Spontaneous
  Country: US (occurrence: US)
  Receive Date: 20170718
  Receipt Date: 20170718
  Transmission Date: 20171127
  Serious: Yes (Death)
  Sender: FDA-Public Use
  Company Number: US-ASTELLAS-2017US028067

PATIENT
  Sex: Female

DRUGS (1)
  1. TARCEVA [Suspect]
     Active Substance: ERLOTINIB HYDROCHLORIDE
     Indication: SQUAMOUS CELL CARCINOMA OF SKIN
     Route: 048
     Dates: start: 20170525, end: 20170601

REACTIONS (1)
  - Malaise [Fatal]
